FAERS Safety Report 14037955 (Version 4)
Quarter: 2018Q1

REPORT INFORMATION
  Report Type: Report from Study
  Country: CN (occurrence: CN)
  Receive Date: 20171004
  Receipt Date: 20180122
  Transmission Date: 20180508
  Serious: Yes (Other)
  Sender: FDA-Public Use
  Company Number: PHHY2017CN141929

PATIENT
  Age: 43 Year
  Sex: Female

DRUGS (40)
  1. METHYLPREDNISOLONE SODIUM SUCCINATE. [Suspect]
     Active Substance: METHYLPREDNISOLONE SODIUM SUCCINATE
     Dosage: 400 MG, QD
     Route: 065
     Dates: start: 20170727, end: 20170727
  2. METHYLPREDNISOLONE SODIUM SUCCINATE. [Suspect]
     Active Substance: METHYLPREDNISOLONE SODIUM SUCCINATE
     Dosage: 240 MG, QD
     Route: 065
     Dates: start: 20170729, end: 20170729
  3. METHYLPREDNISOLONE SODIUM SUCCINATE. [Suspect]
     Active Substance: METHYLPREDNISOLONE SODIUM SUCCINATE
     Dosage: 80 MG, QD
     Route: 065
     Dates: start: 20170801, end: 20170801
  4. TACROLIMUS. [Suspect]
     Active Substance: TACROLIMUS
     Indication: IMMUNOSUPPRESSANT DRUG THERAPY
     Dosage: 7 MG, QD
     Route: 065
     Dates: start: 20170726, end: 20170728
  5. AMBROXOL HYDROCHLORIDE [Concomitant]
     Active Substance: AMBROXOL HYDROCHLORIDE
     Indication: PRODUCTIVE COUGH
     Dosage: 90 MG, BID
     Route: 042
     Dates: start: 20170726, end: 20170801
  6. CEFTIZOXIME SODIUM [Concomitant]
     Active Substance: CEFTIZOXIME SODIUM
     Indication: PRODUCT USED FOR UNKNOWN INDICATION
     Dosage: 2 G, BID
     Route: 042
     Dates: start: 20170726, end: 20170803
  7. ESOMEPRAZOLE MAGNESIUM. [Concomitant]
     Active Substance: ESOMEPRAZOLE MAGNESIUM
     Indication: PROPHYLAXIS
     Dosage: 20 MG, BID
     Route: 048
     Dates: start: 20170803
  8. GLUTATHIONE [Concomitant]
     Active Substance: GLUTATHIONE
     Indication: PRODUCT USED FOR UNKNOWN INDICATION
     Dosage: 2.7 G, BID
     Route: 042
     Dates: start: 20170726, end: 20170803
  9. NIFEDIPINE. [Concomitant]
     Active Substance: NIFEDIPINE
     Dosage: 10 MG, TEMPORARY
     Route: 048
     Dates: start: 20170730, end: 20170730
  10. BASILIXIMAB [Suspect]
     Active Substance: BASILIXIMAB
     Indication: IMMUNOSUPPRESSANT DRUG THERAPY
     Dosage: 20 MG, QD
     Route: 065
     Dates: start: 20170729, end: 20170729
  11. METHYLPREDNISOLONE SODIUM SUCCINATE. [Suspect]
     Active Substance: METHYLPREDNISOLONE SODIUM SUCCINATE
     Dosage: 120 MG, QD
     Route: 065
     Dates: start: 20170731, end: 20170731
  12. TACROLIMUS. [Suspect]
     Active Substance: TACROLIMUS
     Dosage: 8.5 MG, QD
     Route: 065
     Dates: start: 20170802
  13. FASUDIL HYDROCHLORIDE [Concomitant]
     Active Substance: FASUDIL HYDROCHLORIDE
     Indication: CARDIOVASCULAR DISORDER
     Dosage: 30 MG, QD
     Route: 042
     Dates: start: 20170726, end: 20170731
  14. MYFORTIC [Suspect]
     Active Substance: MYCOPHENOLATE SODIUM
     Indication: IMMUNOSUPPRESSANT DRUG THERAPY
     Dosage: 1080 MG, QD
     Route: 065
     Dates: start: 20170808
  15. TACROLIMUS. [Suspect]
     Active Substance: TACROLIMUS
     Dosage: 6 MG, QD
     Route: 065
     Dates: start: 20170728, end: 20170731
  16. AROTINOLOL [Concomitant]
     Active Substance: AROTINOLOL
     Indication: PRODUCT USED FOR UNKNOWN INDICATION
     Dosage: 10 MG, ST
     Route: 048
     Dates: start: 20170727, end: 20170727
  17. CASPOFUNGIN [Concomitant]
     Active Substance: CASPOFUNGIN
     Indication: INFECTION PROPHYLAXIS
     Dosage: 50 MG, QD
     Route: 042
     Dates: start: 20170726, end: 20170803
  18. EPIAO [Concomitant]
     Dosage: 10000 IU, TEMPORARY
     Dates: start: 20170730, end: 20170730
  19. HUMAN ALBUMIN [Concomitant]
     Active Substance: ALBUMIN HUMAN
     Indication: BLOOD ALBUMIN ABNORMAL
     Dosage: 50 ML, QD
     Route: 042
     Dates: start: 20170726, end: 20170803
  20. NICARDIPINE [Concomitant]
     Active Substance: NICARDIPINE
     Indication: PRODUCT USED FOR UNKNOWN INDICATION
     Dosage: 20 MG, TEMPORARY
     Route: 042
     Dates: start: 20170728, end: 20170728
  21. NOVOLIN R [Concomitant]
     Active Substance: INSULIN HUMAN
     Indication: BLOOD POTASSIUM DECREASED
     Dosage: 10 IU, TEMPORARY
     Route: 042
     Dates: start: 20170726, end: 20170726
  22. ULINASTATIN [Concomitant]
     Active Substance: ULINASTATIN
     Indication: CARDIOVASCULAR DISORDER
     Dosage: 10000 IU, UNK
     Route: 042
     Dates: start: 20170726, end: 20170801
  23. BASILIXIMAB [Suspect]
     Active Substance: BASILIXIMAB
     Indication: RENAL TRANSPLANT
     Dosage: 20 MG, QD
     Route: 065
     Dates: start: 20170725, end: 20170725
  24. METHYLPREDNISOLONE SODIUM SUCCINATE. [Suspect]
     Active Substance: METHYLPREDNISOLONE SODIUM SUCCINATE
     Dosage: 20 MG, QD
     Route: 065
     Dates: start: 20170803, end: 20170803
  25. EPIAO [Concomitant]
     Indication: HAEMOGLOBIN INCREASED
     Dosage: 10000 OT, ST
     Route: 065
     Dates: start: 20170727, end: 20170727
  26. INTERLEUKIN-11 [Concomitant]
     Indication: WHITE BLOOD CELL COUNT INCREASED
     Dosage: 1.5 MG, UNK
     Route: 065
     Dates: start: 20170730, end: 20170730
  27. LANSOPRAZOLE. [Concomitant]
     Active Substance: LANSOPRAZOLE
     Indication: ACIDOSIS
     Dosage: 30 MG, BID
     Route: 042
     Dates: start: 20170726, end: 20170801
  28. NIFEDIPINE. [Concomitant]
     Active Substance: NIFEDIPINE
     Indication: PRODUCT USED FOR UNKNOWN INDICATION
     Dosage: 10 MG, TEMPORARY
     Route: 048
     Dates: start: 20170727, end: 20170727
  29. METHYLPREDNISOLONE SODIUM SUCCINATE. [Suspect]
     Active Substance: METHYLPREDNISOLONE SODIUM SUCCINATE
     Dosage: 320 MG, QD
     Route: 065
     Dates: start: 20170728, end: 20170728
  30. TACROLIMUS. [Suspect]
     Active Substance: TACROLIMUS
     Dosage: 8 MG, QD
     Route: 065
     Dates: start: 20170801, end: 20170801
  31. PREDNISONE. [Suspect]
     Active Substance: PREDNISONE
     Indication: IMMUNOSUPPRESSANT DRUG THERAPY
     Dosage: 20 MG, QD
     Route: 065
     Dates: start: 20170803
  32. FERROUS SUCCINATE [Concomitant]
     Active Substance: FERROUS SUCCINATE
     Indication: HAEMOGLOBIN INCREASED
     Dosage: 100 MG, TID
     Route: 048
     Dates: start: 20170730, end: 20170805
  33. METHYLPREDNISOLONE SODIUM SUCCINATE. [Suspect]
     Active Substance: METHYLPREDNISOLONE SODIUM SUCCINATE
     Indication: IMMUNOSUPPRESSANT DRUG THERAPY
     Dosage: 500 MG, QD
     Route: 065
     Dates: start: 20170725, end: 20170725
  34. METHYLPREDNISOLONE SODIUM SUCCINATE. [Suspect]
     Active Substance: METHYLPREDNISOLONE SODIUM SUCCINATE
     Indication: DELAYED GRAFT FUNCTION
     Dosage: 500 MG, QD
     Route: 065
     Dates: start: 20170726, end: 20170726
  35. TACROLIMUS. [Suspect]
     Active Substance: TACROLIMUS
     Dosage: 7 MG, QD
     Route: 065
     Dates: start: 20170731, end: 20170801
  36. FOLATE [Concomitant]
     Active Substance: FOLATE SODIUM
     Indication: HAEMOGLOBIN INCREASED
     Dosage: 5 MG, QD
     Route: 048
     Dates: start: 20170730, end: 20170805
  37. MYFORTIC [Suspect]
     Active Substance: MYCOPHENOLATE SODIUM
     Indication: RENAL TRANSPLANT
     Dosage: 1440 MG, QD
     Route: 065
     Dates: start: 20170726, end: 20170801
  38. METHYLPREDNISOLONE SODIUM SUCCINATE. [Suspect]
     Active Substance: METHYLPREDNISOLONE SODIUM SUCCINATE
     Dosage: 160 MG, QD
     Route: 065
     Dates: start: 20170730, end: 20170730
  39. METHYLPREDNISOLONE SODIUM SUCCINATE. [Suspect]
     Active Substance: METHYLPREDNISOLONE SODIUM SUCCINATE
     Dosage: 40 MG, QD
     Route: 065
     Dates: start: 20170802, end: 20170802
  40. HUMAN INSULIN [Concomitant]
     Active Substance: INSULIN HUMAN
     Indication: BLOOD POTASSIUM INCREASED
     Dosage: 10 IU, CASUAL
     Route: 042
     Dates: start: 20170726, end: 20170726

REACTIONS (7)
  - Haemoglobin decreased [Recovered/Resolved]
  - White blood cell count increased [Recovered/Resolved]
  - Complications of transplanted kidney [Recovered/Resolved]
  - White blood cell count decreased [Recovered/Resolved]
  - Anaemia [Recovered/Resolved]
  - Red blood cells urine positive [Unknown]
  - Neutrophil count increased [Recovered/Resolved]

NARRATIVE: CASE EVENT DATE: 20170726
